FAERS Safety Report 20655238 (Version 1)
Quarter: 2022Q1

REPORT INFORMATION
  Report Type: Spontaneous
  Country: US (occurrence: US)
  Receive Date: 20220330
  Receipt Date: 20220330
  Transmission Date: 20220424
  Serious: No
  Sender: FDA-Public Use
  Company Number: US-JUBILANT PHARMA LTD-2021US000932

PATIENT
  Sex: Female

DRUGS (2)
  1. DRAXIMAGE MAA [Suspect]
     Active Substance: TECHNETIUM TC-99M ALBUMIN AGGREGATED
     Indication: Ventilation/perfusion scan
     Dosage: 5.1 MCI, SINGLE DOSE
     Dates: start: 20211130, end: 20211130
  2. DRAXIMAGE MAA [Suspect]
     Active Substance: TECHNETIUM TC-99M ALBUMIN AGGREGATED
     Dosage: 6.4 MCI, SINGLE DOSE
     Dates: start: 20211201, end: 20211201

REACTIONS (4)
  - Drug ineffective [Unknown]
  - Drug ineffective [Unknown]
  - Product preparation issue [Unknown]
  - Product preparation issue [Unknown]

NARRATIVE: CASE EVENT DATE: 20211130
